FAERS Safety Report 5163559-5 (Version None)
Quarter: 2006Q4

REPORT INFORMATION
  Report Type: 
  Country: None (occurrence: None)
  Receive Date: 20061204
  Receipt Date: 20061122
  Transmission Date: 20070319
  Serious: Yes (Hospitalization, Other)
  Sender: FDA-Public Use
  Company Number: PHFR2006GB03472

PATIENT
  Sex: Female

DRUGS (1)
  1. NEORAL [Suspect]
     Indication: LIVER TRANSPLANT

REACTIONS (5)
  - HEPATIC FUNCTION ABNORMAL [None]
  - LIFE SUPPORT [None]
  - LIVER FUNCTION TEST ABNORMAL [None]
  - MENINGITIS [None]
  - RENAL IMPAIRMENT [None]
